FAERS Safety Report 11987463 (Version 1)
Quarter: 2016Q1

REPORT INFORMATION
  Report Type: Spontaneous
  Country: US (occurrence: US)
  Receive Date: 20160202
  Receipt Date: 20160202
  Transmission Date: 20160526
  Serious: No
  Sender: FDA-Public Use
  Company Number: US-009507513-1602USA000653

PATIENT
  Sex: Male

DRUGS (2)
  1. CUBICIN [Suspect]
     Active Substance: DAPTOMYCIN
  2. INVANZ [Suspect]
     Active Substance: ERTAPENEM SODIUM
     Indication: CELLULITIS
     Dosage: ^1 GRAM/ DAILY^
     Route: 042

REACTIONS (2)
  - Discomfort [Unknown]
  - Hypersensitivity [Unknown]
